FAERS Safety Report 5630309-5 (Version None)
Quarter: 2008Q1

REPORT INFORMATION
  Report Type: 
  Country: None (occurrence: None)
  Receive Date: 20080219
  Receipt Date: 20080207
  Transmission Date: 20080703
  Serious: Yes (Other)
  Sender: FDA-Public Use
  Company Number: JP-SANOFI-SYNTHELABO-A01200801680

PATIENT
  Age: 53 Year

DRUGS (4)
  1. LEUCOVORIN CALCIUM [Suspect]
     Dosage: UNK
     Route: 042
  2. FLUOROURACIL [Suspect]
     Dosage: UNK
     Route: 042
  3. OXALIPLATIN [Suspect]
     Indication: RECTAL CANCER
     Dosage: 120 MG/BODY
     Route: 042
  4. OXALIPLATIN [Suspect]
     Indication: METASTASES TO LIVER
     Dosage: 120 MG/BODY
     Route: 042

REACTIONS (1)
  - BONE MARROW FAILURE [None]
